FAERS Safety Report 8570819-4 (Version None)
Quarter: 2012Q3

REPORT INFORMATION
  Report Type: 
  Country: None (occurrence: None)
  Receive Date: 20120806
  Receipt Date: 20120731
  Transmission Date: 20120928
  Serious: Yes (Hospitalization)
  Sender: FDA-Public Use
  Company Number: IT-GE HEALTHCARE MEDICAL DIAGNOSTICS-OMPQ-NO-1208S-0834

PATIENT
  Sex: Female

DRUGS (1)
  1. OMNIPAQUE 140 [Suspect]
     Indication: PRODUCT USED FOR UNKNOWN INDICATION
     Route: 042
     Dates: start: 20120504, end: 20120504

REACTIONS (6)
  - ABDOMINAL PAIN [None]
  - HYPOTENSION [None]
  - HEADACHE [None]
  - OCULAR HYPERAEMIA [None]
  - ERYTHEMA [None]
  - VOMITING [None]
